FAERS Safety Report 8592825-6 (Version None)
Quarter: 2012Q3

REPORT INFORMATION
  Report Type: 
  Country: None (occurrence: None)
  Receive Date: 20120814
  Receipt Date: 20120801
  Transmission Date: 20120928
  Serious: Yes (Hospitalization)
  Sender: FDA-Public Use
  Company Number: JP-SANOFI-AVENTIS-2012SA055904

PATIENT
  Age: 66 Year
  Sex: Male

DRUGS (1)
  1. CLOPIDOGREL BISULFATE [Suspect]
     Indication: CAROTID ARTERY OCCLUSION
     Route: 065
     Dates: start: 20110501

REACTIONS (3)
  - LUNG CONSOLIDATION [None]
  - LUNG DISORDER [None]
  - DYSPNOEA EXERTIONAL [None]
